FAERS Safety Report 8519932-8 (Version None)
Quarter: 2012Q3

REPORT INFORMATION
  Report Type: 
  Country: None (occurrence: None)
  Receive Date: 20120719
  Receipt Date: 20120710
  Transmission Date: 20120928
  Serious: Yes (Other)
  Sender: FDA-Public Use
  Company Number: US-BRISTOL-MYERS SQUIBB COMPANY-16709941

PATIENT
  Age: 60 Year
  Sex: Female
  Weight: 62 kg

DRUGS (5)
  1. PROTONIX [Concomitant]
     Route: 048
  2. PAXIL [Concomitant]
  3. ABATACEPT SUBQ INJECTION 125MG/ML [Suspect]
     Indication: RHEUMATOID ARTHRITIS
     Dosage: NDC 0003-21883
     Route: 058
     Dates: start: 20120213
  4. MEDROL [Concomitant]
     Dosage: DOSE:4 MG.
     Route: 048
  5. COMBIPATCH [Concomitant]

REACTIONS (5)
  - WEIGHT INCREASED [None]
  - HEADACHE [None]
  - HEPATIC ENZYME INCREASED [None]
  - ESCHERICHIA URINARY TRACT INFECTION [None]
  - ALOPECIA [None]
